FAERS Safety Report 25728087 (Version 2)
Quarter: 2025Q4

REPORT INFORMATION
  Report Type: Spontaneous
  Country: EU (occurrence: EU)
  Receive Date: 20250826
  Receipt Date: 20251008
  Transmission Date: 20260117
  Serious: Yes (Other)
  Sender: MYLAN
  Company Number: EU-MYLANLABS-2025M1070622

PATIENT
  Age: 50 Year
  Sex: Female

DRUGS (20)
  1. XANAX [Suspect]
     Active Substance: ALPRAZOLAM
     Indication: Product used for unknown indication
     Dosage: 0.75 MILLIGRAM, BID
  2. XANAX [Suspect]
     Active Substance: ALPRAZOLAM
     Dosage: 0.75 MILLIGRAM, BID
  3. XANAX [Suspect]
     Active Substance: ALPRAZOLAM
     Dosage: 0.75 MILLIGRAM, BID
     Route: 048
  4. XANAX [Suspect]
     Active Substance: ALPRAZOLAM
     Dosage: 0.75 MILLIGRAM, BID
     Route: 048
  5. XANAX [Suspect]
     Active Substance: ALPRAZOLAM
     Dosage: UNK, BID (30 DROPS IN THE MORNING AND 30 DROPS IN THE EVENING)
  6. XANAX [Suspect]
     Active Substance: ALPRAZOLAM
     Dosage: UNK, BID (30 DROPS IN THE MORNING AND 30 DROPS IN THE EVENING)
  7. XANAX [Suspect]
     Active Substance: ALPRAZOLAM
     Dosage: UNK, BID (30 DROPS IN THE MORNING AND 30 DROPS IN THE EVENING)
     Route: 065
  8. XANAX [Suspect]
     Active Substance: ALPRAZOLAM
     Dosage: UNK, BID (30 DROPS IN THE MORNING AND 30 DROPS IN THE EVENING)
     Route: 065
  9. VITAMIN D3 [Concomitant]
     Active Substance: CHOLECALCIFEROL
     Dosage: UNK (EVERY THREE MONTHS)
  10. VITAMIN D3 [Concomitant]
     Active Substance: CHOLECALCIFEROL
     Dosage: UNK (EVERY THREE MONTHS)
     Route: 065
  11. VITAMIN D3 [Concomitant]
     Active Substance: CHOLECALCIFEROL
     Dosage: UNK (EVERY THREE MONTHS)
     Route: 065
  12. VITAMIN D3 [Concomitant]
     Active Substance: CHOLECALCIFEROL
     Dosage: UNK (EVERY THREE MONTHS)
  13. IRON [Concomitant]
     Active Substance: IRON
     Dosage: UNK (10 DAYS BEFORE, DURING, AND AFTER THE MENSTRUAL CYCLE)
  14. IRON [Concomitant]
     Active Substance: IRON
     Dosage: UNK (10 DAYS BEFORE, DURING, AND AFTER THE MENSTRUAL CYCLE)
     Route: 065
  15. IRON [Concomitant]
     Active Substance: IRON
     Dosage: UNK (10 DAYS BEFORE, DURING, AND AFTER THE MENSTRUAL CYCLE)
     Route: 065
  16. IRON [Concomitant]
     Active Substance: IRON
     Dosage: UNK (10 DAYS BEFORE, DURING, AND AFTER THE MENSTRUAL CYCLE)
  17. TRAZODONE HYDROCHLORIDE [Concomitant]
     Active Substance: TRAZODONE HYDROCHLORIDE
     Dosage: UNK
  18. TRAZODONE HYDROCHLORIDE [Concomitant]
     Active Substance: TRAZODONE HYDROCHLORIDE
     Dosage: UNK
     Route: 065
  19. TRAZODONE HYDROCHLORIDE [Concomitant]
     Active Substance: TRAZODONE HYDROCHLORIDE
     Dosage: UNK
     Route: 065
  20. TRAZODONE HYDROCHLORIDE [Concomitant]
     Active Substance: TRAZODONE HYDROCHLORIDE
     Dosage: UNK

REACTIONS (5)
  - Drug dependence [Unknown]
  - Intentional product misuse [Unknown]
  - Drug effect less than expected [Recovered/Resolved]
  - Product container seal issue [Unknown]
  - Accidental exposure to product [Unknown]
